FAERS Safety Report 7179662-4 (Version None)
Quarter: 2010Q4

REPORT INFORMATION
  Report Type: 
  Country: None (occurrence: None)
  Receive Date: 20101208
  Receipt Date: 20101123
  Transmission Date: 20110411
  Serious: Yes (Hospitalization)
  Sender: FDA-Public Use
  Company Number: AUR-APL-2010-02936

PATIENT
  Age: 49 Year
  Sex: Female

DRUGS (2)
  1. ATOMOXETINE [Suspect]
     Dosage: 1.6G-ONE TIME DOSE-ORAL
     Route: 048
  2. ETHANOL [Suspect]

REACTIONS (4)
  - ELECTROCARDIOGRAM QT PROLONGED [None]
  - INTENTIONAL OVERDOSE [None]
  - SINUS TACHYCARDIA [None]
  - SUICIDE ATTEMPT [None]
